FAERS Safety Report 8918198 (Version 1)
Quarter: 2012Q4

REPORT INFORMATION
  Report Type: 
  Country: US (occurrence: US)
  Receive Date: 20121120
  Receipt Date: 20121120
  Transmission Date: 20130627
  Serious: No
  Sender: FDA-Public Use
  Company Number: US-ASTRAZENECA-2012SE22564

PATIENT
  Age: 25650 Day
  Sex: Female

DRUGS (1)
  1. NEXIUM [Suspect]
     Indication: GASTROOESOPHAGEAL REFLUX DISEASE
     Route: 048
     Dates: start: 20120402, end: 20120404

REACTIONS (4)
  - Muscle spasms [Unknown]
  - Groin pain [Recovered/Resolved]
  - Gastrooesophageal reflux disease [Unknown]
  - Oropharyngeal pain [Unknown]
